FAERS Safety Report 11097410 (Version 1)
Quarter: 2015Q2

REPORT INFORMATION
  Report Type: Spontaneous
  Country: US (occurrence: US)
  Receive Date: 20150507
  Receipt Date: 20150507
  Transmission Date: 20150821
  Serious: No
  Sender: FDA-Public Use
  Company Number: US-GLAXOSMITHKLINE-US2015037458

PATIENT
  Age: 24 Year
  Sex: Female

DRUGS (2)
  1. CLARITIN [Concomitant]
     Active Substance: LORATADINE
  2. FLONASE [Suspect]
     Active Substance: FLUTICASONE PROPIONATE
     Indication: HYPERSENSITIVITY
     Dosage: UNK

REACTIONS (2)
  - Drug administration error [Unknown]
  - Drug ineffective [Unknown]
